FAERS Safety Report 24721177 (Version 1)
Quarter: 2024Q4

REPORT INFORMATION
  Report Type: Spontaneous
  Country: US (occurrence: US)
  Receive Date: 20241211
  Receipt Date: 20241211
  Transmission Date: 20250114
  Serious: Yes (Other)
  Sender: SANOFI AVENTIS
  Company Number: US-SA-2024SA363766

PATIENT
  Age: 66 Year
  Sex: Male

DRUGS (7)
  1. REZUROCK [Suspect]
     Active Substance: BELUMOSUDIL
     Indication: Acute lymphocytic leukaemia
     Dosage: 200 MG, QD
     Route: 048
     Dates: start: 20211119, end: 2022
  2. REZUROCK [Suspect]
     Active Substance: BELUMOSUDIL
     Dosage: UNK
  3. ZOFRAN [Concomitant]
     Active Substance: ONDANSETRON HYDROCHLORIDE
     Dosage: UNK
  4. URSODIOL [Concomitant]
     Active Substance: URSODIOL
     Dosage: UNK
  5. TACROLIMUS [Concomitant]
     Active Substance: TACROLIMUS
     Dosage: UNK
  6. SIROLIMUS [Concomitant]
     Active Substance: SIROLIMUS
     Dosage: UNK
  7. JAKAFI [Concomitant]
     Active Substance: RUXOLITINIB
     Dosage: UNK

REACTIONS (3)
  - Cerebrovascular accident [Recovered/Resolved]
  - Joint swelling [Recovered/Resolved]
  - Product use in unapproved indication [Unknown]

NARRATIVE: CASE EVENT DATE: 20211119
